FAERS Safety Report 4546466-8 (Version None)
Quarter: 2005Q1

REPORT INFORMATION
  Report Type: 
  Country: None (occurrence: None)
  Receive Date: 20050103
  Receipt Date: 20041208
  Transmission Date: 20050727
  Serious: Yes (Hospitalization, Other)
  Sender: FDA-Public Use
  Company Number: JP_041205396

PATIENT
  Age: 70 Year
  Sex: Female

DRUGS (2)
  1. HUMALOG [Suspect]
     Indication: DIABETES MELLITUS
     Dates: start: 19990101
  2. HUMALOG [Suspect]
     Indication: PANCREATECTOMY
     Dates: start: 19990101

REACTIONS (8)
  - CARDIAC VENTRICULOGRAM LEFT ABNORMAL [None]
  - CARDIOMYOPATHY [None]
  - DECREASED APPETITE [None]
  - HYPOGLYCAEMIC COMA [None]
  - INCONTINENCE [None]
  - MYOCARDIAL INFARCTION [None]
  - SHOCK [None]
  - VOMITING [None]
